FAERS Safety Report 19926891 (Version 5)
Quarter: 2021Q4

REPORT INFORMATION
  Report Type: Spontaneous
  Country: US (occurrence: US)
  Receive Date: 20211007
  Receipt Date: 20211124
  Transmission Date: 20220303
  Serious: No
  Sender: FDA-Public Use
  Company Number: US-GLAXOSMITHKLINE-USCH2021067299

PATIENT
  Age: 65 Year
  Sex: Female

DRUGS (4)
  1. NICORETTE [Suspect]
     Active Substance: NICOTINE
     Indication: Anxiety
     Dosage: UNK
  2. NICORETTE [Suspect]
     Active Substance: NICOTINE
     Dosage: UNK
  3. NICORETTE [Suspect]
     Active Substance: NICOTINE
     Indication: Anxiety
     Dosage: UNK
  4. NICORETTE SPEARMINT BURST [Suspect]
     Active Substance: NICOTINE
     Indication: Anxiety
     Dosage: UNK

REACTIONS (5)
  - Tooth discolouration [Unknown]
  - Nausea [Unknown]
  - Illness [Unknown]
  - Incorrect dose administered [Unknown]
  - Product complaint [Unknown]
